FAERS Safety Report 21845765 (Version 1)
Quarter: 2023Q1

REPORT INFORMATION
  Report Type: Report from Study
  Country: US (occurrence: US)
  Receive Date: 20230111
  Receipt Date: 20230111
  Transmission Date: 20230417
  Serious: No
  Sender: FDA-Public Use
  Company Number: US-ABBVIE-4229682

PATIENT
  Sex: Male

DRUGS (1)
  1. SKYRIZI [Suspect]
     Active Substance: RISANKIZUMAB-RZAA
     Indication: Psoriasis
     Dosage: FIRST ADMIN DATE: 20 SEP 2022??FORM STRENGTH: 150 MG??- FREQUENCY TEXT: WEEK 4??150MG/ML SQ WEEK ...
     Route: 058

REACTIONS (2)
  - Gastrointestinal infection [Unknown]
  - Malaise [Unknown]

NARRATIVE: CASE EVENT DATE: 20220101
